FAERS Safety Report 5391432-6 (Version None)
Quarter: 2007Q3

REPORT INFORMATION
  Report Type: 
  Country: None (occurrence: None)
  Receive Date: 20070719
  Receipt Date: 20070718
  Transmission Date: 20080115
  Serious: Yes (Other)
  Sender: FDA-Public Use
  Company Number: A0664534A

PATIENT
  Age: 57 Year
  Sex: Female

DRUGS (1)
  1. ALLI [Suspect]
     Indication: WEIGHT LOSS DIET
     Route: 065
     Dates: start: 20070716, end: 20070717

REACTIONS (7)
  - ANAL HAEMORRHAGE [None]
  - BODY TEMPERATURE INCREASED [None]
  - DYSURIA [None]
  - FEAR [None]
  - HAEMATURIA [None]
  - MALAISE [None]
  - NERVOUSNESS [None]
